FAERS Safety Report 22254452 (Version 1)
Quarter: 2023Q2

REPORT INFORMATION
  Report Type: Spontaneous
  Country: FR (occurrence: FR)
  Receive Date: 20230426
  Receipt Date: 20230426
  Transmission Date: 20230721
  Serious: Yes (Hospitalization)
  Sender: FDA-Public Use
  Company Number: None

PATIENT
  Age: 21 Year
  Sex: Male

DRUGS (2)
  1. BRIVIACT [Suspect]
     Active Substance: BRIVARACETAM
     Indication: Epilepsy
     Dosage: 200 MILLIGRAM, ONCE DAILY (QD)
     Route: 048
     Dates: end: 20220411
  2. LOXAPINE [Suspect]
     Active Substance: LOXAPINE
     Indication: Epilepsy
     Dosage: 30 MILLIGRAM, ONCE DAILY (QD)
     Route: 048
     Dates: end: 20220331

REACTIONS (2)
  - Apathy [Recovering/Resolving]
  - Psychomotor skills impaired [Recovering/Resolving]

NARRATIVE: CASE EVENT DATE: 20220201
